FAERS Safety Report 9878719 (Version 3)
Quarter: 2014Q1

REPORT INFORMATION
  Report Type: Spontaneous
  Country: US (occurrence: US)
  Receive Date: 20140206
  Receipt Date: 20140324
  Transmission Date: 20141002
  Serious: Yes (Hospitalization, Disabling)
  Sender: FDA-Public Use
  Company Number: US-GLAXOSMITHKLINE-A0862809A

PATIENT
  Sex: Female
  Weight: 80.5 kg

DRUGS (8)
  1. AVANDIA [Suspect]
     Indication: DIABETES MELLITUS
     Dosage: 8MG TWICE PER DAY
     Route: 048
     Dates: start: 2002, end: 2007
  2. METFORMIN [Concomitant]
  3. ESTRADIOL [Concomitant]
  4. PREVACID [Concomitant]
  5. PRAVACHOL [Concomitant]
  6. WELLBUTRIN [Concomitant]
  7. ZETIA [Concomitant]
  8. ZYRTEC [Concomitant]

REACTIONS (3)
  - Cerebrovascular accident [Not Recovered/Not Resolved]
  - VIIth nerve paralysis [Unknown]
  - Amnesia [Unknown]
